FAERS Safety Report 16643259 (Version 1)
Quarter: 2019Q3

REPORT INFORMATION
  Report Type: Spontaneous
  Country: CL (occurrence: CL)
  Receive Date: 20190729
  Receipt Date: 20190729
  Transmission Date: 20191004
  Serious: Yes (Other)
  Sender: FDA-Public Use
  Company Number: CL-PROVELL PHARMACEUTICALS-2071427

PATIENT
  Age: 64 Year
  Sex: Female

DRUGS (1)
  1. EUTHYROX [Suspect]
     Active Substance: LEVOTHYROXINE SODIUM
     Indication: PRODUCT USED FOR UNKNOWN INDICATION

REACTIONS (14)
  - Weight fluctuation [None]
  - Feeling abnormal [None]
  - Arthralgia [None]
  - Haemorrhoids [None]
  - Somnolence [None]
  - Insomnia [None]
  - Depression [None]
  - Hypoaesthesia [None]
  - Onychoclasis [None]
  - Overweight [None]
  - Hypothyroidism [None]
  - Constipation [None]
  - Fluid retention [None]
  - Temperature intolerance [None]
